FAERS Safety Report 8321760-3 (Version None)
Quarter: 2012Q2

REPORT INFORMATION
  Report Type: 
  Country: None (occurrence: None)
  Receive Date: 20120430
  Receipt Date: 20120420
  Transmission Date: 20120825
  Serious: Yes (Hospitalization, Other)
  Sender: FDA-Public Use
  Company Number: US-US-EMD SERONO, INC.-7113435

PATIENT
  Sex: Female

DRUGS (4)
  1. REBIF [Suspect]
     Indication: PRODUCT USED FOR UNKNOWN INDICATION
     Route: 058
     Dates: end: 20111001
  2. REBIF [Suspect]
     Route: 058
  3. REBIF [Suspect]
     Route: 058
     Dates: start: 20120213, end: 20120301
  4. REBIF [Suspect]
     Route: 058

REACTIONS (5)
  - GASTRIC BYPASS [None]
  - MEDICAL DEVICE COMPLICATION [None]
  - INFLUENZA LIKE ILLNESS [None]
  - LETHARGY [None]
  - GASTRIC INFECTION [None]
